FAERS Safety Report 7421296-8 (Version None)
Quarter: 2011Q2

REPORT INFORMATION
  Report Type: 
  Country: None (occurrence: None)
  Receive Date: 20110408
  Receipt Date: 20110328
  Transmission Date: 20111010
  Serious: Yes (Other)
  Sender: FDA-Public Use
  Company Number: 201110336

PATIENT
  Sex: Male

DRUGS (2)
  1. LIORESAL [Suspect]
     Indication: MUSCLE SPASTICITY
     Dosage: DAILY, INTRATHECAL
     Route: 037
  2. DILAUDID [Concomitant]

REACTIONS (6)
  - ANAPHYLACTIC REACTION [None]
  - DEVICE DAMAGE [None]
  - OVERDOSE [None]
  - FEELING ABNORMAL [None]
  - DEVICE LEAKAGE [None]
  - IATROGENIC INJURY [None]
